FAERS Safety Report 23421865 (Version 1)
Quarter: 2024Q1

REPORT INFORMATION
  Report Type: Spontaneous
  Country: US (occurrence: US)
  Receive Date: 20240119
  Receipt Date: 20240119
  Transmission Date: 20240410
  Serious: No
  Sender: FDA-Public Use
  Company Number: US-BRACCO-2023US06720

PATIENT
  Age: 47 Year
  Sex: Male

DRUGS (1)
  1. VUEWAY [Suspect]
     Active Substance: GADOPICLENOL
     Indication: Magnetic resonance imaging head
     Dosage: 11 ML, SINGLE
     Route: 042
     Dates: start: 20231211, end: 20231211

REACTIONS (1)
  - Hypersensitivity [Recovered/Resolved]

NARRATIVE: CASE EVENT DATE: 20231211
